FAERS Safety Report 17851288 (Version 2)
Quarter: 2020Q2

REPORT INFORMATION
  Report Type: Report from Study
  Country: None (occurrence: AU)
  Receive Date: 20200602
  Receipt Date: 20200617
  Transmission Date: 20200714
  Serious: Yes (Other)
  Sender: FDA-Public Use
  Company Number: AU-ABBVIE-20K-008-3420066-00

PATIENT
  Age: 81 Year
  Sex: Male

DRUGS (2)
  1. GOSERELIN ACETATE [Concomitant]
     Active Substance: GOSERELIN ACETATE
     Indication: PROSTATE CANCER
  2. IMBRUVICA [Suspect]
     Active Substance: IBRUTINIB
     Indication: CHRONIC LYMPHOCYTIC LEUKAEMIA
     Route: 048
     Dates: start: 20200403, end: 20200508

REACTIONS (2)
  - Arrhythmia [Recovering/Resolving]
  - Mass [Not Recovered/Not Resolved]

NARRATIVE: CASE EVENT DATE: 20200508
